FAERS Safety Report 5947719-9 (Version None)
Quarter: 2008Q4

REPORT INFORMATION
  Report Type: 
  Country: None (occurrence: None)
  Receive Date: 20081110
  Receipt Date: 20081110
  Transmission Date: 20090506
  Serious: Yes (Other)
  Sender: FDA-Public Use
  Company Number: None

PATIENT
  Sex: Female

DRUGS (2)
  1. DIVALPROEX SODIUM [Suspect]
     Indication: BIPOLAR II DISORDER
     Dosage: 250MG 2 TABS QAM 3 TABS QHS PO
     Route: 048
     Dates: start: 20081013
  2. SERTRALINE [Concomitant]

REACTIONS (4)
  - DRUG LEVEL CHANGED [None]
  - DRUG LEVEL DECREASED [None]
  - LABORATORY TEST INTERFERENCE [None]
  - PRODUCT QUALITY ISSUE [None]
